FAERS Safety Report 9687397 (Version 2)
Quarter: 2014Q2

REPORT INFORMATION
  Report Type: Report from Study
  Country: JP (occurrence: JP)
  Receive Date: 20131114
  Receipt Date: 20140422
  Transmission Date: 20141212
  Serious: Yes (Death)
  Sender: FDA-Public Use
  Company Number: JP-ROCHE-1300200

PATIENT
  Sex: Male
  Weight: 39 kg

DRUGS (1)
  1. TOCILIZUMAB [Suspect]
     Indication: CASTLEMAN^S DISEASE
     Route: 041
     Dates: start: 20051026

REACTIONS (2)
  - Cerebral infarction [Fatal]
  - Cardiac failure acute [Fatal]
